FAERS Safety Report 15660746 (Version 3)
Quarter: 2020Q3

REPORT INFORMATION
  Report Type: Report from Study
  Country: CO (occurrence: CO)
  Receive Date: 20181127
  Receipt Date: 20200727
  Transmission Date: 20201102
  Serious: Yes (Hospitalization)
  Sender: FDA-Public Use
  Company Number: CO-JNJFOC-20181128839

PATIENT
  Sex: Male
  Weight: 60 kg

DRUGS (4)
  1. BETAMETASONE LFM [Concomitant]
  2. STELARA [Suspect]
     Active Substance: USTEKINUMAB
     Indication: PSORIASIS
     Dosage: INITIAL DOSE
     Route: 058
     Dates: start: 20180716, end: 20180716
  3. DAIVOBET [Concomitant]
     Active Substance: BETAMETHASONE DIPROPIONATE\CALCIPOTRIENE
  4. STELARA [Suspect]
     Active Substance: USTEKINUMAB
     Dosage: ON WEEK?4
     Route: 058
     Dates: start: 20180815, end: 20190304

REACTIONS (3)
  - Weight decreased [Recovered/Resolved]
  - Skin bacterial infection [Recovered/Resolved]
  - Psoriasis [Recovered/Resolved]

NARRATIVE: CASE EVENT DATE: 2018
